FAERS Safety Report 14623870 (Version 1)
Quarter: 2018Q1

REPORT INFORMATION
  Report Type: Spontaneous
  Country: US (occurrence: US)
  Receive Date: 20180309
  Receipt Date: 20180309
  Transmission Date: 20180509
  Serious: Yes (Life-Threatening, Hospitalization)
  Sender: FDA-Public Use
  Company Number: None

PATIENT
  Age: 94 Year
  Sex: Male
  Weight: 68.95 kg

DRUGS (1)
  1. LISINOPRIL. [Suspect]
     Active Substance: LISINOPRIL
     Indication: HYPERTENSION
     Dates: start: 20161209, end: 20170721

REACTIONS (4)
  - Dysphagia [None]
  - Angioedema [None]
  - Oropharyngeal pain [None]
  - Odynophagia [None]

NARRATIVE: CASE EVENT DATE: 20170721
